FAERS Safety Report 8263416-1 (Version None)
Quarter: 2012Q2

REPORT INFORMATION
  Report Type: 
  Country: None (occurrence: None)
  Receive Date: 20120405
  Receipt Date: 20120404
  Transmission Date: 20120825
  Serious: No
  Sender: FDA-Public Use
  Company Number: US-BAYER-2012-033254

PATIENT
  Sex: Female

DRUGS (1)
  1. MIRENA [Suspect]
     Indication: CONTRACEPTION
     Dosage: UNK
     Dates: start: 20120201

REACTIONS (5)
  - VAGINAL DISCHARGE [None]
  - ABDOMINAL DISCOMFORT [None]
  - FATIGUE [None]
  - WEIGHT INCREASED [None]
  - ABDOMINAL DISTENSION [None]
